FAERS Safety Report 12009078 (Version 1)
Quarter: 2016Q1

REPORT INFORMATION
  Report Type: Report from Study
  Country: US (occurrence: US)
  Receive Date: 20160205
  Receipt Date: 20160205
  Transmission Date: 20160526
  Serious: No
  Sender: FDA-Public Use
  Company Number: US-ABBVIE-15K-163-1445542-00

PATIENT
  Age: 57 Year
  Sex: Female

DRUGS (5)
  1. PREDNISONE. [Concomitant]
     Active Substance: PREDNISONE
     Indication: PRODUCT USED FOR UNKNOWN INDICATION
     Dosage: FOR TWO WEEKS
  2. PREDNISONE. [Concomitant]
     Active Substance: PREDNISONE
     Dosage: FOR ONE WEEK
  3. HUMIRA [Suspect]
     Active Substance: ADALIMUMAB
     Indication: RHEUMATOID ARTHRITIS
     Route: 065
     Dates: start: 20150608
  4. PREDNISONE. [Concomitant]
     Active Substance: PREDNISONE
     Dosage: FOR ONE WEEK
  5. PREDNISONE. [Concomitant]
     Active Substance: PREDNISONE
     Dosage: STOPPED TAPER
     Dates: end: 20150807

REACTIONS (25)
  - Limb injury [Unknown]
  - Psychomotor hyperactivity [Unknown]
  - Sinus congestion [Not Recovered/Not Resolved]
  - Unevaluable event [Unknown]
  - Feeling cold [Unknown]
  - Dry mouth [Not Recovered/Not Resolved]
  - Hyperhidrosis [Unknown]
  - Nasal mucosal discolouration [Not Recovered/Not Resolved]
  - Insomnia [Unknown]
  - Dysphagia [Not Recovered/Not Resolved]
  - Neck pain [Not Recovered/Not Resolved]
  - Fall [Recovered/Resolved]
  - Asthenia [Not Recovered/Not Resolved]
  - Oral pain [Not Recovered/Not Resolved]
  - Feeling hot [Unknown]
  - Oropharyngeal discomfort [Unknown]
  - Burning sensation [Unknown]
  - Abdominal pain upper [Not Recovered/Not Resolved]
  - Chest pain [Not Recovered/Not Resolved]
  - Epistaxis [Not Recovered/Not Resolved]
  - Fatigue [Not Recovered/Not Resolved]
  - Judgement impaired [Unknown]
  - Sinus disorder [Not Recovered/Not Resolved]
  - Thinking abnormal [Unknown]
  - Oropharyngeal discomfort [Not Recovered/Not Resolved]

NARRATIVE: CASE EVENT DATE: 2015
